FAERS Safety Report 9800092 (Version 3)
Quarter: 2015Q3

REPORT INFORMATION
  Report Type: Spontaneous
  Country: US (occurrence: US)
  Receive Date: 20140106
  Receipt Date: 20150806
  Transmission Date: 20151125
  Serious: Yes (Hospitalization)
  Sender: FDA-Public Use
  Company Number: US-GILEAD-2010-0032512

PATIENT
  Age: 75 Year
  Sex: Male
  Weight: 61.23 kg

DRUGS (24)
  1. LIPITOR [Concomitant]
     Active Substance: ATORVASTATIN CALCIUM
  2. AVODART [Concomitant]
     Active Substance: DUTASTERIDE
  3. LEVOXYL [Concomitant]
     Active Substance: LEVOTHYROXINE SODIUM
  4. HYDRALAZINE [Concomitant]
     Active Substance: HYDRALAZINE HYDROCHLORIDE
  5. CENTRUM SILVER [Concomitant]
     Active Substance: VITAMINS
  6. VITAMIN D3 [Concomitant]
     Active Substance: CHOLECALCIFEROL
  7. LUCENTIS [Concomitant]
     Active Substance: RANIBIZUMAB
  8. STOOL SOFTNER [Concomitant]
  9. PREDNISONE. [Concomitant]
     Active Substance: PREDNISONE
  10. TAMSULOSIN [Concomitant]
     Active Substance: TAMSULOSIN
  11. LOSARTAN. [Concomitant]
     Active Substance: LOSARTAN
  12. CALCIUM [Concomitant]
     Active Substance: CALCIUM
  13. LETAIRIS [Suspect]
     Active Substance: AMBRISENTAN
     Indication: PULMONARY ARTERIAL HYPERTENSION
     Route: 048
     Dates: start: 20101001, end: 20101007
  14. REVATIO [Concomitant]
     Active Substance: SILDENAFIL CITRATE
  15. WARFARIN [Concomitant]
     Active Substance: WARFARIN
  16. ISOSORBIDE DN [Concomitant]
  17. ARANESP [Concomitant]
     Active Substance: DARBEPOETIN ALFA
  18. FUROSEMIDE. [Concomitant]
     Active Substance: FUROSEMIDE
  19. ANDROGEL [Concomitant]
     Active Substance: TESTOSTERONE
  20. OSCAL [Concomitant]
     Active Substance: CALCIUM CARBONATE
  21. MIRALAX [Concomitant]
     Active Substance: POLYETHYLENE GLYCOL 3350
  22. METOPROLOL [Concomitant]
     Active Substance: METOPROLOL
  23. TEMAZEPAM. [Concomitant]
     Active Substance: TEMAZEPAM
  24. SYMBICORT [Concomitant]
     Active Substance: BUDESONIDE\FORMOTEROL FUMARATE DIHYDRATE

REACTIONS (2)
  - Dyspnoea [Unknown]
  - Oedema peripheral [Unknown]
